FAERS Safety Report 25977954 (Version 1)
Quarter: 2025Q4

REPORT INFORMATION
  Report Type: Report from Study
  Country: EU (occurrence: EU)
  Receive Date: 20251030
  Receipt Date: 20251030
  Transmission Date: 20260118
  Serious: Yes (Other)
  Sender: ABBVIE
  Company Number: EU-ABBVIE-6522700

PATIENT
  Age: 76 Year
  Sex: Male

DRUGS (1)
  1. FOSCARBIDOPA\FOSLEVODOPA [Suspect]
     Active Substance: FOSCARBIDOPA\FOSLEVODOPA
     Indication: Parkinson^s disease
     Dosage: DAILY DOSE: 1,747.2 MG, CRL: 0.22 ML/H, CRB: 0.32 ML/H, CRH: 0.34 ML/H, ED: 0.2 ML, LD: 0 ML.
     Route: 058
     Dates: start: 20250121

REACTIONS (3)
  - Neoplasm prostate [Not Recovered/Not Resolved]
  - Catheter site rash [Unknown]
  - Catheter site pruritus [Unknown]

NARRATIVE: CASE EVENT DATE: 20250101
